FAERS Safety Report 8973700 (Version 1)
Quarter: 2012Q4

REPORT INFORMATION
  Report Type: 
  Country: US (occurrence: US)
  Receive Date: 20121218
  Receipt Date: 20121218
  Transmission Date: 20130627
  Serious: No
  Sender: FDA-Public Use
  Company Number: US-PFIZER INC-2012309530

PATIENT
  Age: 67 Year
  Sex: Male

DRUGS (1)
  1. XALKORI [Suspect]
     Indication: LUNG CANCER
     Dosage: 250 mg, 2x/day
     Dates: start: 20120224, end: 20121205

REACTIONS (2)
  - Disease progression [Unknown]
  - Lung neoplasm malignant [Unknown]
